FAERS Safety Report 9385793 (Version 2)
Quarter: 2014Q2

REPORT INFORMATION
  Report Type: Spontaneous
  Country: GB (occurrence: GB)
  Receive Date: 20130705
  Receipt Date: 20140428
  Transmission Date: 20141212
  Serious: Yes (Life-Threatening, Hospitalization)
  Sender: FDA-Public Use
  Company Number: PHHY2013GB069750

PATIENT
  Age: 73 Year
  Sex: Female
  Weight: 68 kg

DRUGS (8)
  1. ZOLEDRONATE [Suspect]
     Indication: OSTEOPOROTIC FRACTURE
     Dosage: 5 MG, UNK
     Route: 042
     Dates: start: 20130129, end: 20130129
  2. DIHYDROCODEINE [Concomitant]
     Dosage: UNK UKN, UNK
  3. CO-CODAMOL [Concomitant]
     Dosage: UNK UKN, UNK
  4. COZAAR [Concomitant]
     Dosage: UNK UKN, UNK
  5. LORATADINE [Concomitant]
     Dosage: UNK UKN, UNK
  6. OMEPRAZOLE [Concomitant]
     Dosage: UNK UKN, UNK
  7. SERETIDE [Concomitant]
     Dosage: UNK UKN, UNK
     Route: 055
  8. SALBUTAMOL [Concomitant]
     Dosage: UNK UKN, UNK
     Route: 055

REACTIONS (7)
  - Diverticulitis [Recovered/Resolved]
  - Syncope [Recovered/Resolved]
  - Diarrhoea [Recovered/Resolved]
  - Vomiting [Recovered/Resolved]
  - Dehydration [Recovered/Resolved]
  - Platelet count increased [Unknown]
  - Malaise [Unknown]
